FAERS Safety Report 11038438 (Version 1)
Quarter: 2015Q2

REPORT INFORMATION
  Report Type: Spontaneous
  Country: US (occurrence: None)
  Receive Date: 20150415
  Receipt Date: 20150415
  Transmission Date: 20150821
  Serious: Yes (Disabling, Other)
  Sender: FDA-Public Use
  Company Number: None

PATIENT
  Sex: Female

DRUGS (3)
  1. TYLENOL WITH CODEINE [Concomitant]
     Active Substance: ACETAMINOPHEN\CODEINE PHOSPHATE
  2. ASPRIN [Concomitant]
     Active Substance: ASPIRIN
  3. LEVOFLOXACIN. [Suspect]
     Active Substance: LEVOFLOXACIN
     Indication: PAIN
     Dates: start: 20150124

REACTIONS (5)
  - Muscular weakness [None]
  - Activities of daily living impaired [None]
  - Hypersensitivity [None]
  - Pain in extremity [None]
  - Impaired work ability [None]

NARRATIVE: CASE EVENT DATE: 20150131
